FAERS Safety Report 5724534-2 (Version None)
Quarter: 2008Q2

REPORT INFORMATION
  Report Type: 
  Country: None (occurrence: None)
  Receive Date: 20080428
  Receipt Date: 20080421
  Transmission Date: 20081010
  Serious: Yes (Other)
  Sender: FDA-Public Use
  Company Number: DSA_31695_2008

PATIENT
  Sex: Female

DRUGS (3)
  1. VASOTEC [Suspect]
     Indication: HYPERTENSION
     Dosage: (10 MG QD ORAL),  (20 MG BID)
     Route: 048
     Dates: start: 19950101
  2. VASOTEC [Suspect]
     Indication: HYPERTENSION
     Dosage: (10 MG QD ORAL),  (20 MG BID)
     Route: 048
     Dates: start: 20080408
  3. INSULIN [Concomitant]

REACTIONS (4)
  - HYPERTENSION [None]
  - STRESS [None]
  - TREATMENT NONCOMPLIANCE [None]
  - UNDERDOSE [None]
